FAERS Safety Report 10027358 (Version 1)
Quarter: 2014Q1

REPORT INFORMATION
  Report Type: Spontaneous
  Country: JP (occurrence: None)
  Receive Date: 20140319
  Receipt Date: 20140319
  Transmission Date: 20141002
  Serious: Yes (Other)
  Sender: FDA-Public Use
  Company Number: 2014JP002213

PATIENT
  Age: 36 Year
  Sex: Male
  Weight: 80 kg

DRUGS (6)
  1. REGNITE [Suspect]
     Route: 048
     Dates: start: 20140306, end: 20140306
  2. SEROQUEL [Suspect]
     Route: 048
  3. ANTIEPILEPTICS [Concomitant]
  4. ANTIDEPRESSANTS [Concomitant]
  5. HYPNOTICS AND SEDATIVES [Concomitant]
  6. ANTIANXIETICS (ANTIANXIETICS) [Concomitant]

REACTIONS (4)
  - Suicide attempt [None]
  - Tachycardia [None]
  - Altered state of consciousness [None]
  - Intentional overdose [None]
